FAERS Safety Report 7738053-5 (Version None)
Quarter: 2011Q3

REPORT INFORMATION
  Report Type: 
  Country: None (occurrence: None)
  Receive Date: 20110906
  Receipt Date: 20110825
  Transmission Date: 20111222
  Serious: Yes (Hospitalization)
  Sender: FDA-Public Use
  Company Number: 2011HGS-002477

PATIENT
  Age: 60 Year
  Sex: Female

DRUGS (1)
  1. BENLYSTA [Suspect]
     Indication: SYSTEMIC LUPUS ERYTHEMATOSUS
     Dosage: 10 MG/KG, INTRAVENOUS DRIP
     Route: 041
     Dates: start: 20110713, end: 20110713

REACTIONS (10)
  - DRY THROAT [None]
  - CHEST PAIN [None]
  - OROPHARYNGEAL PAIN [None]
  - CELLULITIS [None]
  - INFLUENZA LIKE ILLNESS [None]
  - PYREXIA [None]
  - ERYTHEMA [None]
  - CHILLS [None]
  - OEDEMA PERIPHERAL [None]
  - PAIN [None]
